FAERS Safety Report 10654925 (Version 3)
Quarter: 2015Q1

REPORT INFORMATION
  Report Type: Spontaneous
  Country: US (occurrence: US)
  Receive Date: 20141216
  Receipt Date: 20150306
  Transmission Date: 20150720
  Serious: Yes (Hospitalization)
  Sender: FDA-Public Use
  Company Number: US-PFIZER INC-2014343953

PATIENT
  Age: 64 Year
  Sex: Female

DRUGS (4)
  1. SOMA 350 [Concomitant]
     Dosage: UNK, AS NEEDED
     Dates: start: 1985
  2. NEURONTIN [Suspect]
     Active Substance: GABAPENTIN
     Indication: NEUROPATHY PERIPHERAL
     Dosage: 600 MG, 4X/DAY
     Dates: start: 20141221
  3. NEURONTIN [Suspect]
     Active Substance: GABAPENTIN
     Dosage: 900 MG, 4X/DAY
  4. PERCOCET [Concomitant]
     Active Substance: ACETAMINOPHEN\OXYCODONE HYDROCHLORIDE
     Dosage: OXYCODONE HYDROCHLORIDE 10/ PARACETAMOL 325, AS NEEDED
     Dates: start: 2014

REACTIONS (1)
  - Musculoskeletal discomfort [Recovered/Resolved]

NARRATIVE: CASE EVENT DATE: 20141221
